FAERS Safety Report 7826668-5 (Version None)
Quarter: 2011Q4

REPORT INFORMATION
  Report Type: 
  Country: None (occurrence: None)
  Receive Date: 20111020
  Receipt Date: 20111005
  Transmission Date: 20120403
  Serious: Yes (Other)
  Sender: FDA-Public Use
  Company Number: IT-AMGEN-ITASP2011051592

PATIENT
  Age: 77 Year
  Sex: Male

DRUGS (5)
  1. DOXORUBICIN HCL [Concomitant]
     Dosage: 550 MG, UNK
     Route: 042
     Dates: start: 20060831, end: 20070316
  2. DACARBAZINE [Concomitant]
     Dosage: 7750 MG, UNK
     Route: 042
     Dates: start: 20060831, end: 20070316
  3. GRANULOKINE [Suspect]
     Indication: NEUTROPENIA
     Dosage: 18000 MUG, UNK
     Route: 058
     Dates: start: 20060906, end: 20070105
  4. BLEOPRIM [Suspect]
     Indication: HODGKIN'S DISEASE
     Dosage: 133 MG, UNK
     Route: 042
     Dates: start: 20060831, end: 20070104
  5. VINBLASTINE SULFATE [Concomitant]
     Dosage: 120 MG, UNK
     Route: 042
     Dates: start: 20060831, end: 20070316

REACTIONS (1)
  - INTERSTITIAL LUNG DISEASE [None]
